FAERS Safety Report 9895015 (Version 2)
Quarter: 2014Q1

REPORT INFORMATION
  Report Type: Spontaneous
  Country: US (occurrence: US)
  Receive Date: 20140213
  Receipt Date: 20140213
  Transmission Date: 20141002
  Serious: No
  Sender: FDA-Public Use
  Company Number: US-BRISTOL-MYERS SQUIBB COMPANY-17337080

PATIENT
  Age: 78 Year
  Sex: Female

DRUGS (2)
  1. ORENCIA FOR INJ [Suspect]
     Route: 042
     Dates: start: 20130121
  2. METHOTREXATE [Concomitant]

REACTIONS (4)
  - Musculoskeletal stiffness [Unknown]
  - Movement disorder [Unknown]
  - Drug ineffective [Unknown]
  - Tooth disorder [Unknown]
